FAERS Safety Report 7709205-5 (Version None)
Quarter: 2011Q3

REPORT INFORMATION
  Report Type: 
  Country: None (occurrence: None)
  Receive Date: 20110825
  Receipt Date: 20110819
  Transmission Date: 20111222
  Serious: Yes (Hospitalization)
  Sender: FDA-Public Use
  Company Number: PHHO2011US09749

PATIENT
  Sex: Male
  Weight: 86 kg

DRUGS (9)
  1. AMLODIPINE [Concomitant]
     Indication: HYPERTENSION
  2. ASPIRIN [Suspect]
  3. CERTICAN [Suspect]
     Indication: RENAL TRANSPLANT
     Dosage: 1.5 MG, BID
     Route: 048
     Dates: start: 20110526, end: 20110605
  4. CERTICAN [Suspect]
     Dosage: 1.5 MG, BID
     Route: 048
     Dates: start: 20110623
  5. INSULIN [Concomitant]
     Indication: DIABETES MELLITUS
  6. METOPROLOL TARTRATE [Concomitant]
     Indication: HYPERTENSION
  7. CALCIUM ACETATE [Concomitant]
     Indication: RENAL FAILURE CHRONIC
  8. CLONIDINE [Concomitant]
     Indication: HYPERTENSION
  9. CRESTOR [Concomitant]
     Indication: HYPERLIPIDAEMIA

REACTIONS (3)
  - RENAL HAEMORRHAGE [None]
  - RETROPERITONEAL HAEMATOMA [None]
  - VASCULAR PSEUDOANEURYSM [None]
